FAERS Safety Report 11853739 (Version 1)
Quarter: 2015Q4

REPORT INFORMATION
  Report Type: Spontaneous
  Country: US (occurrence: US)
  Receive Date: 20151219
  Receipt Date: 20151219
  Transmission Date: 20160305
  Serious: No
  Sender: FDA-Public Use
  Company Number: US-BRISTOL-MYERS SQUIBB COMPANY-BMS-2015-087182

PATIENT
  Age: 68 Year
  Sex: Male
  Weight: 74.83 kg

DRUGS (1)
  1. DAKLINZA [Suspect]
     Active Substance: DACLATASVIR
     Indication: HEPATITIS C
     Dosage: UNK
     Route: 065
     Dates: start: 201511

REACTIONS (3)
  - Visual impairment [Unknown]
  - Appetite disorder [Unknown]
  - Vascular rupture [Unknown]

NARRATIVE: CASE EVENT DATE: 20151202
